FAERS Safety Report 6500313-3 (Version None)
Quarter: 2009Q4

REPORT INFORMATION
  Report Type: 
  Country: None (occurrence: None)
  Receive Date: 20091215
  Receipt Date: 20091215
  Transmission Date: 20100525
  Serious: No
  Sender: FDA-Public Use
  Company Number: None

PATIENT
  Age: 80 Year
  Sex: Male

DRUGS (2)
  1. WARFARIN SODIUM [Suspect]
     Dates: end: 20090825
  2. PREDNISONE TAB [Suspect]
     Dates: start: 20090805

REACTIONS (1)
  - UPPER GASTROINTESTINAL HAEMORRHAGE [None]
